FAERS Safety Report 10570599 (Version 7)
Quarter: 2018Q1

REPORT INFORMATION
  Report Type: Spontaneous
  Country: US (occurrence: US)
  Receive Date: 20141107
  Receipt Date: 20180312
  Transmission Date: 20180508
  Serious: Yes (Death, Hospitalization, Disabling, Other)
  Sender: FDA-Public Use
  Company Number: US-009507513-1411USA000515

PATIENT
  Sex: Male

DRUGS (4)
  1. FOSAMAX [Suspect]
     Active Substance: ALENDRONATE SODIUM
     Indication: OSTEOPOROSIS PROPHYLAXIS
  2. CALCIUM (UNSPECIFIED) [Concomitant]
     Active Substance: CALCIUM
     Indication: PRODUCT USED FOR UNKNOWN INDICATION
     Dosage: UNK
     Route: 065
     Dates: start: 2000, end: 2013
  3. OMEGA-3 MARINE TRIGLYCERIDES [Concomitant]
     Active Substance: FISH OIL
     Indication: PRODUCT USED FOR UNKNOWN INDICATION
     Dosage: UNK
     Route: 065
     Dates: start: 2000, end: 2013
  4. FOSAMAX [Suspect]
     Active Substance: ALENDRONATE SODIUM
     Indication: BONE DENSITY DECREASED
     Dosage: 35 MG, QW
     Route: 048
     Dates: start: 2001

REACTIONS (22)
  - Hyperglycaemia [Unknown]
  - Coronary arterial stent insertion [Unknown]
  - Death [Fatal]
  - Fall [Unknown]
  - Basal cell carcinoma [Unknown]
  - Radiotherapy to head and neck [Unknown]
  - Cataract operation [Unknown]
  - Joint injury [Unknown]
  - Femur fracture [Recovered/Resolved]
  - Heart rate irregular [Unknown]
  - Pulmonary fibrosis [Unknown]
  - Aspergillus infection [Unknown]
  - Sleep apnoea syndrome [Unknown]
  - Squamous cell carcinoma [Unknown]
  - Fall [Unknown]
  - Coronary artery disease [Unknown]
  - Oedema peripheral [Unknown]
  - Pain [Recovered/Resolved]
  - Pulmonary hypertension [Unknown]
  - Squamous cell carcinoma [Unknown]
  - Lung transplant [Unknown]
  - Cellulitis [Recovering/Resolving]

NARRATIVE: CASE EVENT DATE: 2001
